FAERS Safety Report 5622701-X (Version None)
Quarter: 2008Q1

REPORT INFORMATION
  Report Type: 
  Country: None (occurrence: None)
  Receive Date: 20080208
  Receipt Date: 20080208
  Transmission Date: 20080703
  Serious: No
  Sender: FDA-Public Use
  Company Number: None

PATIENT
  Age: 59 Year
  Sex: Male

DRUGS (1)
  1. QUETIAPINE FUMARATE [Suspect]
     Indication: POST-TRAUMATIC STRESS DISORDER
     Dosage: 25MG HS PO
     Route: 048
     Dates: start: 20071031, end: 20071128

REACTIONS (4)
  - CONDITION AGGRAVATED [None]
  - NIGHTMARE [None]
  - SLEEP DISORDER [None]
  - SLEEP TALKING [None]
